FAERS Safety Report 11837451 (Version 2)
Quarter: 2016Q1

REPORT INFORMATION
  Report Type: Report from Study
  Country: JP (occurrence: JP)
  Receive Date: 20151215
  Receipt Date: 20160211
  Transmission Date: 20160525
  Serious: Yes (Death)
  Sender: FDA-Public Use
  Company Number: JP-BAYER-2015-481187

PATIENT
  Age: 80 Year
  Sex: Female
  Weight: 47.6 kg

DRUGS (1)
  1. STIVARGA [Suspect]
     Active Substance: REGORAFENIB
     Indication: GASTROINTESTINAL STROMAL TUMOUR
     Dosage: 120 MG, QD (ONE CYCLE IS STIVARGA 120MG, QD ON FOR 2 WEEKS)
     Route: 048
     Dates: start: 20151019, end: 20151101

REACTIONS (3)
  - Hepatic function abnormal [Fatal]
  - Interstitial lung disease [Fatal]
  - Disseminated intravascular coagulation [Fatal]

NARRATIVE: CASE EVENT DATE: 20151101
